FAERS Safety Report 18080379 (Version 2)
Quarter: 2020Q4

REPORT INFORMATION
  Report Type: Spontaneous
  Country: US (occurrence: US)
  Receive Date: 20200728
  Receipt Date: 20201118
  Transmission Date: 20210113
  Serious: No
  Sender: FDA-Public Use
  Company Number: US-SEPTODONT-202005716

PATIENT
  Age: 5 Decade
  Sex: Male
  Weight: 73 kg

DRUGS (3)
  1. ORAVERSE [Suspect]
     Active Substance: PHENTOLAMINE MESYLATE
     Indication: ANAESTHESIA REVERSAL
     Dates: start: 20200203, end: 20200203
  2. SEPTOCAINE AND EPINEPHRINE [Suspect]
     Active Substance: ARTICAINE HYDROCHLORIDE\EPINEPHRINE BITARTRATE
     Indication: DENTAL LOCAL ANAESTHESIA
     Dosage: ONE-HALF (1/2) CARTRIDGE
     Route: 004
     Dates: start: 20200203, end: 20200203
  3. PRILOCAINE 4% [Suspect]
     Active Substance: PRILOCAINE HYDROCHLORIDE
     Indication: DENTAL LOCAL ANAESTHESIA
     Dosage: ONE-HALF (1/2) CARTRIDGE
     Route: 004
     Dates: start: 20200203, end: 20200203

REACTIONS (5)
  - Hypoaesthesia [Not Recovered/Not Resolved]
  - Paraesthesia [Not Recovered/Not Resolved]
  - Taste disorder [Not Recovered/Not Resolved]
  - Vth nerve injury [Not Recovered/Not Resolved]
  - Anaesthesia oral [Not Recovered/Not Resolved]

NARRATIVE: CASE EVENT DATE: 20200203
